FAERS Safety Report 12803660 (Version 1)
Quarter: 2016Q4

REPORT INFORMATION
  Report Type: Spontaneous
  Country: US (occurrence: US)
  Receive Date: 20161003
  Receipt Date: 20161003
  Transmission Date: 20170207
  Serious: Yes (Other)
  Sender: FDA-Public Use
  Company Number: US-GILEAD-2016-0235696

PATIENT
  Age: 63 Year
  Sex: Male

DRUGS (1)
  1. HARVONI [Suspect]
     Active Substance: LEDIPASVIR\SOFOSBUVIR
     Indication: HEPATITIS C
     Dosage: UNK
     Route: 065
     Dates: start: 201411, end: 201501

REACTIONS (17)
  - Hepatitis C [Unknown]
  - Prostatomegaly [Unknown]
  - Dementia [Unknown]
  - Renal disorder [Unknown]
  - Gastrointestinal disorder [Unknown]
  - Blood testosterone decreased [Unknown]
  - Visual impairment [Unknown]
  - Nephropathy [Unknown]
  - Eye oedema [Unknown]
  - Arthralgia [Unknown]
  - Drug ineffective [Unknown]
  - Weight decreased [Unknown]
  - Fatigue [Unknown]
  - Fluid retention [Unknown]
  - Myalgia [Unknown]
  - Nephrolithiasis [Unknown]
  - Hepatic pain [Unknown]
